FAERS Safety Report 16795266 (Version 2)
Quarter: 2019Q3

REPORT INFORMATION
  Report Type: Report from Study
  Country: CO (occurrence: CO)
  Receive Date: 20190911
  Receipt Date: 20190917
  Transmission Date: 20191005
  Serious: Yes (Hospitalization)
  Sender: FDA-Public Use
  Company Number: CO-JNJFOC-20190730996

PATIENT
  Age: 20 Year
  Sex: Male
  Weight: 70 kg

DRUGS (2)
  1. IMBRUVICA [Suspect]
     Active Substance: IBRUTINIB
     Dosage: END DATE REPORTED WAS 04/07/2019
     Route: 048
     Dates: start: 20190618, end: 20190704
  2. IMBRUVICA [Suspect]
     Active Substance: IBRUTINIB
     Indication: CHRONIC GRAFT VERSUS HOST DISEASE
     Dosage: END DATE REPORTED WAS 04/07/2019
     Route: 048
     Dates: start: 20190618, end: 201907

REACTIONS (5)
  - Decreased appetite [Not Recovered/Not Resolved]
  - Bone marrow transplant rejection [Recovering/Resolving]
  - Haemoglobin decreased [Recovering/Resolving]
  - Pain [Unknown]
  - Arthralgia [Not Recovered/Not Resolved]

NARRATIVE: CASE EVENT DATE: 20190725
